FAERS Safety Report 10396964 (Version 1)
Quarter: 2014Q3

REPORT INFORMATION
  Report Type: Spontaneous
  Country: US (occurrence: None)
  Receive Date: 20140819
  Receipt Date: 20140819
  Transmission Date: 20150326
  Serious: No
  Sender: FDA-Public Use
  Company Number: None

PATIENT
  Age: 44 Year
  Sex: Female
  Weight: 250 kg

DRUGS (1)
  1. BELVIQ [Suspect]
     Active Substance: LORCASERIN HYDROCHLORIDE
     Indication: OBESITY
     Dosage: 2 PILLS ONCE DAILY TAKEN BY MOUTH
     Route: 048
     Dates: start: 20140623, end: 20140709

REACTIONS (5)
  - Fatigue [None]
  - Headache [None]
  - Oropharyngeal pain [None]
  - Dizziness [None]
  - Sinus disorder [None]

NARRATIVE: CASE EVENT DATE: 20140623
